FAERS Safety Report 4954470-0 (Version None)
Quarter: 2006Q1

REPORT INFORMATION
  Report Type: 
  Country: None (occurrence: None)
  Receive Date: 20060327
  Receipt Date: 20040901
  Transmission Date: 20060701
  Serious: Yes (Hospitalization)
  Sender: FDA-Public Use
  Company Number: DE-BRISTOL-MYERS SQUIBB COMPANY-13310008

PATIENT
  Age: 56 Year
  Sex: Female
  Weight: 53 kg

DRUGS (16)
  1. SUSTIVA [Suspect]
     Dosage: INITIATED APR-02;600MG/DAYMAR-03;800MG/DAYJUN-03+AUG-03;1000MG/DAYNOV-03;600MG/DAYAPR-2004+AUG-2004.
  2. VIDEX [Suspect]
     Dates: start: 20010401, end: 20010701
  3. ZERIT [Suspect]
     Dosage: APR-2001 - JUL-2001; DEC-2001 40MG 2X1/DAY; LAST REPORTED MAR-2002.
  4. LOPINAVIR [Concomitant]
     Dosage: APR-2001-JUL-2001; JUL-2001- LAST REPORTED MAR-2002.
  5. RITONAVIR [Concomitant]
     Dosage: APR-2001-JUL-2001; JUL-2001; DEC-2001 100MG 2X1/DAY; MAR-2002 200MG/DAY.
  6. LAMIVUDINE [Concomitant]
     Dosage: APR-2001-JUL-2001; JUL-2001; DEC-2001 150MG 2X1/DAY; LAST REPORTED MAR-2002.
  7. INDINIVIR SULFATE [Concomitant]
     Dosage: APR-2001-JUL-2001; JUL-2001; DEC-2001 333MG 2X2/DAY; LAST REPORTED MAR-2002 1322MG/DAY.
  8. ABACAVIR [Concomitant]
     Dates: start: 20020401
  9. RAMIPRIL [Concomitant]
     Indication: HYPERTENSION
     Dates: start: 20011201
  10. SULFAMETHOXAZOLE + TRIMETHOPRIM [Concomitant]
     Dosage: DOSAGE FORM-TBL
     Dates: start: 20011201
  11. AZITHROMYCIN [Concomitant]
     Dosage: DEC-2001 250MG/DAY; MAR-2002 600MG/WEEK.
  12. MYCOBUTIN [Concomitant]
     Indication: TUBERCULOSIS
     Dates: start: 20021201
  13. ISONIAZID [Concomitant]
     Indication: TUBERCULOSIS
     Dates: start: 20021201
  14. PYRAZINAMIDE [Concomitant]
     Indication: TUBERCULOSIS
     Dates: start: 20021201
  15. MYAMBUTOL [Concomitant]
     Indication: TUBERCULOSIS
     Dates: start: 20021201
  16. RIFAMPICIN [Concomitant]
     Indication: TUBERCULOSIS
     Dates: start: 20021201

REACTIONS (22)
  - BACTERIAL INFECTION [None]
  - CACHEXIA [None]
  - CHANGE OF BOWEL HABIT [None]
  - COUGH [None]
  - DECREASED APPETITE [None]
  - DRUG HYPERSENSITIVITY [None]
  - DRUG RESISTANCE [None]
  - DYSAESTHESIA [None]
  - GENERAL PHYSICAL HEALTH DETERIORATION [None]
  - HYPOREFLEXIA [None]
  - HYPOTONIA [None]
  - LIPODYSTROPHY ACQUIRED [None]
  - LYMPH NODE TUBERCULOSIS [None]
  - LYMPHADENOPATHY [None]
  - MYCOBACTERIUM AVIUM COMPLEX INFECTION [None]
  - NAUSEA [None]
  - NEUROLOGICAL EXAMINATION ABNORMAL [None]
  - PANCREATIC ENZYMES INCREASED [None]
  - PNEUMOCYSTIS JIROVECI PNEUMONIA [None]
  - PNEUMONIA [None]
  - SLEEP DISORDER [None]
  - VOMITING [None]
